FAERS Safety Report 4677610-X (Version None)
Quarter: 2005Q2

REPORT INFORMATION
  Report Type: 
  Country: None (occurrence: None)
  Receive Date: 20050527
  Receipt Date: 20050527
  Transmission Date: 20051028
  Serious: No
  Sender: FDA-Public Use
  Company Number: None

PATIENT
  Sex: Male
  Weight: 117.7 kg

DRUGS (1)
  1. GEMCITABINE [Suspect]
     Indication: PANCREATIC CARCINOMA
     Dosage: 1500 MG/M2 IV OVER 150 MIN. Q WK. X3 EVERY 4 WEEKS
     Route: 042
     Dates: start: 20050126

REACTIONS (5)
  - FATIGUE [None]
  - MALIGNANT NEOPLASM PROGRESSION [None]
  - PANCREATIC CARCINOMA [None]
  - PERFORMANCE STATUS DECREASED [None]
  - SOMNOLENCE [None]
